FAERS Safety Report 25324867 (Version 1)
Quarter: 2025Q2

REPORT INFORMATION
  Report Type: Spontaneous
  Country: CA (occurrence: CA)
  Receive Date: 20250516
  Receipt Date: 20250516
  Transmission Date: 20250716
  Serious: Yes (Life-Threatening, Hospitalization)
  Sender: PFIZER
  Company Number: CA-PFIZER INC-202500102155

PATIENT
  Age: 15 Year
  Sex: Male
  Weight: 79 kg

DRUGS (47)
  1. SIROLIMUS [Suspect]
     Active Substance: SIROLIMUS
     Indication: Prophylaxis against graft versus host disease
     Dosage: 5 MG, 1X/DAY
     Route: 048
  2. MYCOPHENOLATE MOFETIL [Suspect]
     Active Substance: MYCOPHENOLATE MOFETIL
     Indication: Prophylaxis against graft versus host disease
     Dosage: 1000 MG, 3X/DAY
  3. ACYCLOVIR [Concomitant]
     Active Substance: ACYCLOVIR
  4. AKYNZEO [FOSNETUPITANT CHLORIDE HYDROCHLORIDE;PALONOSETRON HYDROCHLORI [Concomitant]
  5. ALTEPLASE [Concomitant]
     Active Substance: ALTEPLASE
  6. AMLODIPINE [Concomitant]
     Active Substance: AMLODIPINE BESYLATE
  7. AMPHOTERICIN B [Concomitant]
     Active Substance: AMPHOTERICIN B
  8. AZITHROMYCIN [Concomitant]
     Active Substance: AZITHROMYCIN
  9. BUSULFAN [Concomitant]
     Active Substance: BUSULFAN
  10. CALCIUM [Concomitant]
     Active Substance: CALCIUM
  11. CEFTAZIDIME [Concomitant]
     Active Substance: CEFTAZIDIME
  12. CETIRIZINE [Concomitant]
     Active Substance: CETIRIZINE HYDROCHLORIDE
  13. CIPROFLOXACIN [Concomitant]
     Active Substance: CIPROFLOXACIN
  14. CYCLOPHOSPHAMIDE [Concomitant]
     Active Substance: CYCLOPHOSPHAMIDE
  15. DEXMEDETOMIDINE [Concomitant]
     Active Substance: DEXMEDETOMIDINE
  16. FAMOTIDINE [Concomitant]
     Active Substance: FAMOTIDINE
  17. FLUCONAZOLE [Concomitant]
     Active Substance: FLUCONAZOLE
  18. FLUDARABINE [Concomitant]
     Active Substance: FLUDARABINE PHOSPHATE
  19. FOLIC ACID [Concomitant]
     Active Substance: FOLIC ACID
  20. FOSCARNET SODIUM [Concomitant]
     Active Substance: FOSCARNET SODIUM
     Route: 042
  21. GANCICLOVIR [Concomitant]
     Active Substance: GANCICLOVIR
  22. LACTULOSE [Concomitant]
     Active Substance: LACTULOSE
  23. LEVETIRACETAM [Concomitant]
     Active Substance: LEVETIRACETAM
     Route: 065
  24. LORAZEPAM [Concomitant]
     Active Substance: LORAZEPAM
     Route: 065
  25. CIDOFOVIR [Concomitant]
     Active Substance: CIDOFOVIR
  26. MEROPENEM [Concomitant]
     Active Substance: MEROPENEM
  27. MESNA [Concomitant]
     Active Substance: MESNA
  28. METHYLPREDNISOLONE [Concomitant]
     Active Substance: METHYLPREDNISOLONE
  29. METOCLOPRAMIDE [Concomitant]
     Active Substance: METOCLOPRAMIDE
  30. MYCAMINE [Concomitant]
     Active Substance: MICAFUNGIN SODIUM
  31. NIFEDIPINE [Concomitant]
     Active Substance: NIFEDIPINE
  32. ONDANSETRON [Concomitant]
     Active Substance: ONDANSETRON
  33. PANTOPRAZOLE [Concomitant]
     Active Substance: PANTOPRAZOLE
  34. PENTAMIDINE ISETHIONATE [Concomitant]
     Active Substance: PENTAMIDINE ISETHIONATE
  35. PHYTONADIONE [Concomitant]
     Active Substance: PHYTONADIONE
  36. PIPERACILLIN AND TAZOBACTAM [Concomitant]
     Active Substance: PIPERACILLIN SODIUM\TAZOBACTAM SODIUM
  37. POLYETHYLENE GLYCOLS [Concomitant]
     Active Substance: POLYETHYLENE GLYCOLS
  38. PREDNISONE [Concomitant]
     Active Substance: PREDNISONE
  39. PREVYMIS [Concomitant]
     Active Substance: LETERMOVIR
  40. LAPINE T-LYMPHOCYTE IMMUNE GLOBULIN [Concomitant]
     Active Substance: LAPINE T-LYMPHOCYTE IMMUNE GLOBULIN
  41. RITUXIMAB [Concomitant]
     Active Substance: RITUXIMAB
  42. SENNOSIDES [Concomitant]
     Active Substance: SENNOSIDES
  43. AMINO ACIDS\DEXTROSE\ELECTROLYTES NOS\SOYBEAN OIL [Concomitant]
     Active Substance: AMINO ACIDS\DEXTROSE\ELECTROLYTES NOS\SOYBEAN OIL
  44. TRANEXAMIC ACID [Concomitant]
     Active Substance: TRANEXAMIC ACID
  45. URSODIOL [Concomitant]
     Active Substance: URSODIOL
  46. VALACYCLOVIR [Concomitant]
     Active Substance: VALACYCLOVIR HYDROCHLORIDE
  47. VANCOMYCIN [Concomitant]
     Active Substance: VANCOMYCIN

REACTIONS (2)
  - Acute kidney injury [Unknown]
  - Off label use [Unknown]
